FAERS Safety Report 7756702-2 (Version None)
Quarter: 2011Q3

REPORT INFORMATION
  Report Type: 
  Country: None (occurrence: None)
  Receive Date: 20110916
  Receipt Date: 20110908
  Transmission Date: 20111222
  Serious: Yes (Other)
  Sender: FDA-Public Use
  Company Number: US-BAXTER-2011BH028913

PATIENT
  Age: 63 Year
  Sex: Male

DRUGS (2)
  1. CONTRAST MEDIA [Concomitant]
     Indication: STRESS ECHOCARDIOGRAM
     Route: 065
  2. DOBUTAMINE HYDROCHLORIDE [Suspect]
     Indication: STRESS ECHOCARDIOGRAM
     Route: 042

REACTIONS (1)
  - MYOCARDIAL INFARCTION [None]
